FAERS Safety Report 25575223 (Version 1)
Quarter: 2025Q3

REPORT INFORMATION
  Report Type: Spontaneous
  Country: US (occurrence: US)
  Receive Date: 20250718
  Receipt Date: 20250718
  Transmission Date: 20251021
  Serious: Yes (Hospitalization, Other)
  Sender: RANBAXY
  Company Number: US-SUN PHARMACEUTICAL INDUSTRIES INC-2025R1-516957

PATIENT
  Age: 66 Year
  Sex: Female

DRUGS (1)
  1. NOREPINEPHRINE BITARTRATE [Suspect]
     Active Substance: NOREPINEPHRINE BITARTRATE
     Indication: Obstructive shock
     Route: 065

REACTIONS (3)
  - Condition aggravated [Recovering/Resolving]
  - Cardiac arrest [Recovering/Resolving]
  - Pulseless electrical activity [Recovering/Resolving]
